FAERS Safety Report 5441308-0 (Version None)
Quarter: 2007Q3

REPORT INFORMATION
  Report Type: 
  Country: None (occurrence: None)
  Receive Date: 20070903
  Receipt Date: 20070820
  Transmission Date: 20080115
  Serious: Yes (Hospitalization)
  Sender: FDA-Public Use
  Company Number: PHHO2007PL13735

PATIENT
  Age: 69 Year
  Sex: Female
  Weight: 58 kg

DRUGS (8)
  1. ZOLEDRONIC ACID [Suspect]
     Indication: OSTEOPOROSIS POSTMENOPAUSAL
     Dosage: DOUBLE BLIND
     Route: 042
  2. CALCIUM SANDOZ [Concomitant]
     Indication: OSTEOPOROSIS POSTMENOPAUSAL
     Dates: start: 20030522
  3. VITAMIN D3 [Concomitant]
     Indication: OSTEOPOROSIS POSTMENOPAUSAL
     Dates: start: 20030522
  4. ATENOLOL [Concomitant]
     Indication: CORONARY ARTERY DISEASE
     Dates: start: 20020819, end: 20070604
  5. INHIBACE [Concomitant]
     Indication: CARDIAC FAILURE
     Dates: start: 20020819, end: 20070604
  6. SPIRONOL [Concomitant]
     Indication: CARDIAC FAILURE
     Dates: start: 20030109, end: 20070604
  7. BEMECOR [Concomitant]
     Indication: CARDIAC FAILURE
     Dates: start: 20030109, end: 20070604
  8. ACENOCOUMAROL [Concomitant]
     Indication: PROPHYLAXIS
     Dates: start: 20020827

REACTIONS (3)
  - ATRIAL FIBRILLATION [None]
  - ELECTROCARDIOGRAM T WAVE INVERSION [None]
  - VENTRICULAR FAILURE [None]
